FAERS Safety Report 5855910-5 (Version None)
Quarter: 2008Q3

REPORT INFORMATION
  Report Type: 
  Country: None (occurrence: None)
  Receive Date: 20080825
  Receipt Date: 20080814
  Transmission Date: 20090109
  Serious: Yes (Hospitalization)
  Sender: FDA-Public Use
  Company Number: JP-ELI_LILLY_AND_COMPANY-JP200805003759

PATIENT
  Sex: Female
  Weight: 42.2 kg

DRUGS (8)
  1. ATOMOXETINE HCL [Suspect]
     Indication: ATTENTION DEFICIT/HYPERACTIVITY DISORDER
     Dosage: 20 MG, DAILY (1/D)
     Route: 048
     Dates: start: 20060920, end: 20061003
  2. ATOMOXETINE HCL [Suspect]
     Dosage: 30 MG, DAILY (1/D)
     Route: 048
     Dates: start: 20061004, end: 20061017
  3. ATOMOXETINE HCL [Suspect]
     Dosage: 40 MG, DAILY (1/D)
     Route: 048
     Dates: start: 20061018, end: 20070417
  4. ATOMOXETINE HCL [Suspect]
     Dosage: 50 MG, DAILY (1/D)
     Route: 048
     Dates: start: 20070418, end: 20070515
  5. ATOMOXETINE HCL [Suspect]
     Dosage: 60 MG, DAILY (1/D)
     Route: 048
     Dates: start: 20070516, end: 20070605
  6. ATOMOXETINE HCL [Suspect]
     Dosage: 70 MG, DAILY (1/D)
     Route: 048
     Dates: start: 20070606, end: 20071002
  7. ATOMOXETINE HCL [Suspect]
     Dosage: 60 MG, DAILY (1/D)
     Route: 048
     Dates: start: 20071003, end: 20080512
  8. ATOMOXETINE HCL [Suspect]
     Dosage: 50 MG, DAILY (1/D)
     Route: 048
     Dates: start: 20080513, end: 20080515

REACTIONS (1)
  - THYROIDITIS [None]
